FAERS Safety Report 5908411-X (Version None)
Quarter: 2008Q4

REPORT INFORMATION
  Report Type: 
  Country: None (occurrence: None)
  Receive Date: 20081006
  Receipt Date: 20080925
  Transmission Date: 20090506
  Serious: Yes (Other)
  Sender: FDA-Public Use
  Company Number: FR-JNJFOC-20080901758

PATIENT
  Sex: Female
  Weight: 46 kg

DRUGS (3)
  1. TOPIRAMATE [Suspect]
     Indication: EPILEPSY
     Route: 048
  2. TETRACYCLINE [Concomitant]
     Indication: ACNE
  3. MINOCIN [Concomitant]
     Indication: ACNE
     Route: 048

REACTIONS (1)
  - ANGIOEDEMA [None]
